FAERS Safety Report 7736315-9 (Version None)
Quarter: 2011Q3

REPORT INFORMATION
  Report Type: 
  Country: None (occurrence: None)
  Receive Date: 20110902
  Receipt Date: 20110824
  Transmission Date: 20111222
  Serious: Yes (Death)
  Sender: FDA-Public Use
  Company Number: 2011MA012531

PATIENT
  Age: 65 Year
  Sex: Male

DRUGS (2)
  1. GEMCITABINE HYDROCHLORIDE FOR INJECTION USP 1000MG/VIAL (ATLLC) (GEMCI [Suspect]
     Indication: MESOTHELIOMA
  2. FENTANYL (FENTAYL) [Suspect]
     Indication: PNEUMONIA

REACTIONS (2)
  - INTERSTITIAL LUNG DISEASE [None]
  - PNEUMONIA [None]
